FAERS Safety Report 6112488-9 (Version None)
Quarter: 2009Q1

REPORT INFORMATION
  Report Type: 
  Country: None (occurrence: None)
  Receive Date: 20090312
  Receipt Date: 20090302
  Transmission Date: 20090719
  Serious: Yes (Other)
  Sender: FDA-Public Use
  Company Number: US-WYE-H08403409

PATIENT
  Sex: Female

DRUGS (4)
  1. EFFEXOR XR [Suspect]
     Dosage: UNKNOWN
     Route: 048
  2. EFFEXOR XR [Suspect]
     Dosage: ^TAPERING OFF^
     Route: 048
  3. EFFEXOR XR [Suspect]
     Route: 048
  4. WELLBUTRIN [Concomitant]
     Dosage: UNKNOWN

REACTIONS (6)
  - AGITATION [None]
  - DIZZINESS [None]
  - DRUG DEPENDENCE [None]
  - DRUG WITHDRAWAL SYNDROME [None]
  - PANIC ATTACK [None]
  - SUICIDAL IDEATION [None]
